FAERS Safety Report 20235861 (Version 1)
Quarter: 2021Q4

REPORT INFORMATION
  Report Type: Spontaneous
  Country: DE (occurrence: DE)
  Receive Date: 20211228
  Receipt Date: 20211228
  Transmission Date: 20220303
  Serious: Yes (Hospitalization, Other)
  Sender: FDA-Public Use
  Company Number: DE-ADRED-05768-01

PATIENT
  Age: 47 Year
  Sex: Female
  Weight: 62 kg

DRUGS (10)
  1. DOXORUBICIN [Suspect]
     Active Substance: DOXORUBICIN
  2. ASPIRIN [Suspect]
     Active Substance: ASPIRIN
     Dosage: 100 MG, PAUSIERT
     Route: 048
  3. LEVOTHYROXINE SODIUM [Concomitant]
     Active Substance: LEVOTHYROXINE SODIUM
     Dosage: 50 +#181;G, 1-0-0-0
     Route: 048
  4. ACYCLOVIR [Suspect]
     Active Substance: ACYCLOVIR
     Dosage: 800 MG, 1-0-1-0
     Route: 048
  5. PANTOPRAZOLE SODIUM [Concomitant]
     Active Substance: PANTOPRAZOLE SODIUM
     Dosage: 20 MG, 1-0-0-0
     Route: 048
  6. LENALIDOMIDE [Suspect]
     Active Substance: LENALIDOMIDE
     Dosage: 10 MG, 0-0-0-1, KAPSELN
     Route: 048
  7. COTRIM [Suspect]
     Active Substance: SULFAMETHOXAZOLE\TRIMETHOPRIM
     Dosage: 960 MG, 1-0-0-0
     Route: 048
  8. DEXAMETHASONE [Suspect]
     Active Substance: DEXAMETHASONE
  9. LENALIDOMIDE [Suspect]
     Active Substance: LENALIDOMIDE
     Dosage: 15 MG, 0-0-0-1, KAPSELN
     Route: 048
  10. BORTEZOMIB [Suspect]
     Active Substance: BORTEZOMIB

REACTIONS (7)
  - Cardiovascular disorder [Recovering/Resolving]
  - Diarrhoea [Recovering/Resolving]
  - Abdominal pain lower [Recovering/Resolving]
  - Diarrhoea haemorrhagic [Recovering/Resolving]
  - Thrombocytopenia [Recovering/Resolving]
  - Haematochezia [Recovering/Resolving]
  - Drug interaction [Unknown]
